FAERS Safety Report 20263787 (Version 1)
Quarter: 2021Q4

REPORT INFORMATION
  Report Type: Spontaneous
  Country: US (occurrence: None)
  Receive Date: 20211230
  Receipt Date: 20211230
  Transmission Date: 20220303
  Serious: No
  Sender: FDA-Public Use
  Company Number: None

PATIENT
  Age: 32 Year
  Sex: Female
  Weight: 105.7 kg

DRUGS (4)
  1. BAMLANIVIMAB [Suspect]
     Active Substance: BAMLANIVIMAB
     Indication: COVID-19
     Dosage: FREQUENCY: ONCE?
     Route: 041
     Dates: start: 20211229, end: 20211229
  2. ETESEVIMAB [Suspect]
     Active Substance: ETESEVIMAB
     Indication: COVID-19
     Dosage: FREQUENCY: ONCE?
     Route: 041
     Dates: start: 20211229, end: 20211229
  3. CYCLOBENZAPRINE [Concomitant]
     Active Substance: CYCLOBENZAPRINE
  4. SUMATRIPTAN [Concomitant]
     Active Substance: SUMATRIPTAN

REACTIONS (6)
  - Nausea [None]
  - Paraesthesia [None]
  - Lip swelling [None]
  - Mouth swelling [None]
  - Erythema [None]
  - Infusion related reaction [None]

NARRATIVE: CASE EVENT DATE: 20211229
